FAERS Safety Report 23432232 (Version 1)
Quarter: 2024Q1

REPORT INFORMATION
  Report Type: Spontaneous
  Country: US (occurrence: None)
  Receive Date: 20240123
  Receipt Date: 20240123
  Transmission Date: 20240410
  Serious: Yes (Hospitalization)
  Sender: FDA-Public Use
  Company Number: US-ROCHE-3494590

PATIENT
  Age: 67 Year
  Sex: Female
  Weight: 63.5 kg

DRUGS (3)
  1. ALECENSA [Suspect]
     Active Substance: ALECTINIB HYDROCHLORIDE
     Indication: Non-small cell lung cancer
     Dosage: (4) 150 MG CAPSULES 2X DAILY AT 8 AM AND 8 PM
     Route: 048
     Dates: start: 202202
  2. AMLODIPINE [Concomitant]
     Active Substance: AMLODIPINE BESYLATE
     Indication: Hypertension
     Route: 048
  3. LEVOTHYROXINE [Concomitant]
     Active Substance: LEVOTHYROXINE\LEVOTHYROXINE SODIUM
     Indication: Thyroidectomy
     Route: 048

REACTIONS (6)
  - Pneumonitis [Not Recovered/Not Resolved]
  - Non-small cell lung cancer [Recovered/Resolved]
  - Constipation [Unknown]
  - Vision blurred [Unknown]
  - Photosensitivity reaction [Unknown]
  - Pain [Unknown]

NARRATIVE: CASE EVENT DATE: 20230801
